FAERS Safety Report 8888440 (Version 1)
Quarter: 2012Q4

REPORT INFORMATION
  Report Type: 
  Country: ZA (occurrence: ZA)
  Receive Date: 20121106
  Receipt Date: 20121106
  Transmission Date: 20130627
  Serious: Yes (Hospitalization, Other)
  Sender: FDA-Public Use
  Company Number: PHHY2012ZA101021

PATIENT
  Age: 86 Year
  Sex: Female

DRUGS (8)
  1. ACLASTA [Suspect]
     Dosage: 5 mg/100 ml
     Route: 042
     Dates: start: 201111
  2. NEXIUM [Concomitant]
     Indication: ULCER
     Dosage: 40 mg, UNK
  3. WARFARIN [Concomitant]
  4. PRITOR [Concomitant]
     Indication: BLOOD PRESSURE ABNORMAL
  5. CLOPIDOGREL [Concomitant]
     Dosage: UNK UKN, UNK
  6. BILOCOR [Concomitant]
     Dosage: UNK UKN, UNK
  7. ECOTRIN [Concomitant]
  8. ATOLIP [Concomitant]
     Indication: BLOOD CHOLESTEROL ABNORMAL
     Dosage: 80 mg, UNK

REACTIONS (6)
  - Myocardial infarction [Recovering/Resolving]
  - Pain in extremity [Recovering/Resolving]
  - Feeling abnormal [Recovering/Resolving]
  - Chest discomfort [Recovering/Resolving]
  - A very local cancer, became red and moved along the surface of the skin [Unknown]
  - Asthenia [Unknown]
